FAERS Safety Report 6647153-2 (Version None)
Quarter: 2010Q1

REPORT INFORMATION
  Report Type: 
  Country: None (occurrence: None)
  Receive Date: 20100323
  Receipt Date: 20100312
  Transmission Date: 20100710
  Serious: Yes (Other)
  Sender: FDA-Public Use
  Company Number: PHHY2009CA30907

PATIENT
  Sex: Male

DRUGS (2)
  1. SANDOSTATIN LAR [Suspect]
     Indication: CARCINOID TUMOUR OF THE SMALL BOWEL
     Dosage: 20 MG, QMO
     Route: 030
     Dates: start: 20090623
  2. SANDOSTATIN LAR [Suspect]
     Indication: METASTASES TO LIVER

REACTIONS (4)
  - FLUSHING [None]
  - HEADACHE [None]
  - HOT FLUSH [None]
  - PAIN [None]
